FAERS Safety Report 5926582-6 (Version None)
Quarter: 2008Q4

REPORT INFORMATION
  Report Type: 
  Country: None (occurrence: None)
  Receive Date: 20081022
  Receipt Date: 20081016
  Transmission Date: 20090506
  Serious: Yes (Disabling)
  Sender: FDA-Public Use
  Company Number: DE-WYE-G02068008

PATIENT
  Sex: Female

DRUGS (1)
  1. TREVILOR [Suspect]
     Dosage: UNKNOWN
     Dates: start: 20080801, end: 20080826

REACTIONS (10)
  - AGITATION [None]
  - APATHY [None]
  - ASTHENIA [None]
  - COGNITIVE DISORDER [None]
  - INSOMNIA [None]
  - MIGRAINE [None]
  - MUSCLE CONTRACTIONS INVOLUNTARY [None]
  - MUSCLE SPASMS [None]
  - NAUSEA [None]
  - PAIN [None]
